FAERS Safety Report 7964076-7 (Version None)
Quarter: 2011Q4

REPORT INFORMATION
  Report Type: 
  Country: None (occurrence: None)
  Receive Date: 20111206
  Receipt Date: 20111122
  Transmission Date: 20120403
  Serious: Yes (Hospitalization)
  Sender: FDA-Public Use
  Company Number: 1000024802

PATIENT
  Age: 80 Year
  Sex: Male

DRUGS (9)
  1. MEMANTINE HYDROCHLORIDE [Suspect]
     Indication: DEMENTIA
     Dosage: 5  MG (5 MG,1 IN 1 D),ORAL, 10 MG (10 MG,1 IN 1 D),ORAL 15 MG (15 MG, 1 IN 1 D),ORAL
     Route: 048
  2. IRGAS (IRSOGLADINE MALEATE)(IRSOGLADINE MALEATE) [Concomitant]
  3. MAGMITT (MAGNESIUM OXIDE) (MAGNESIUM OXIDE) [Concomitant]
  4. ASPIRIN [Concomitant]
  5. CRESTOR [Concomitant]
  6. MEMANTINE HYDROCHLORIDE [Suspect]
     Indication: DEMENTIA
     Dosage: 20 MG (20 MG,L IN 1 D),ORAL
     Route: 048
     Dates: end: 20110922
  7. EXCEGRAN (ZONISAMIDE) (ZONISAMIDE) [Concomitant]
  8. ETICALM (ETIZOLAM) (ETIZOLAM) [Concomitant]
  9. AMLODIPINE (AMLODIPINE BESILATE)(AMLODIPINE BESILATE) [Concomitant]

REACTIONS (2)
  - PYREXIA [None]
  - NEUTROPENIA [None]
